FAERS Safety Report 16839375 (Version 1)
Quarter: 2019Q3

REPORT INFORMATION
  Report Type: Report from Study
  Country: IT (occurrence: IT)
  Receive Date: 20190923
  Receipt Date: 20190923
  Transmission Date: 20191005
  Serious: Yes (Hospitalization)
  Sender: FDA-Public Use
  Company Number: IT-JNJFOC-20190923521

PATIENT
  Age: 32 Year
  Sex: Male

DRUGS (4)
  1. TOPAMAX [Suspect]
     Active Substance: TOPIRAMATE
     Indication: MENTAL DISORDER
     Dosage: ; IN TOTAL
     Route: 048
     Dates: start: 20190623, end: 20190623
  2. LATUDA [Suspect]
     Active Substance: LURASIDONE HYDROCHLORIDE
     Indication: MENTAL DISORDER
     Dosage: ; IN TOTAL
     Route: 048
     Dates: start: 20190623, end: 20190623
  3. QUETIAPINE FUMARATE. [Suspect]
     Active Substance: QUETIAPINE FUMARATE
     Indication: MENTAL DISORDER
     Dosage: ; IN TOTAL
     Route: 048
     Dates: start: 20190623, end: 20190623
  4. TEGRETOL [Suspect]
     Active Substance: CARBAMAZEPINE
     Indication: MENTAL DISORDER
     Dosage: ; IN TOTAL
     Route: 048
     Dates: start: 20190623, end: 20190623

REACTIONS (3)
  - Loss of consciousness [Unknown]
  - Off label use [Unknown]
  - Product use in unapproved indication [Unknown]

NARRATIVE: CASE EVENT DATE: 20190623
